FAERS Safety Report 9225051 (Version 1)
Quarter: 2013Q2

REPORT INFORMATION
  Report Type: Spontaneous
  Country: IT (occurrence: IT)
  Receive Date: 20130411
  Receipt Date: 20130411
  Transmission Date: 20140414
  Serious: Yes (Hospitalization)
  Sender: FDA-Public Use
  Company Number: IT-JNJFOC-20130402844

PATIENT
  Age: 21 Year
  Sex: Female

DRUGS (5)
  1. ITRACONAZOLE [Suspect]
     Indication: INTENTIONAL OVERDOSE
     Route: 048
     Dates: start: 20130324, end: 20130324
  2. KETODOL [Suspect]
     Indication: INTENTIONAL OVERDOSE
     Route: 048
     Dates: start: 20130324, end: 20130324
  3. DOXYCYCLINE [Suspect]
     Indication: INTENTIONAL OVERDOSE
     Route: 048
     Dates: start: 20130324, end: 20130324
  4. ASCORBIC ACID [Suspect]
     Indication: INTENTIONAL OVERDOSE
     Route: 048
     Dates: start: 20130324, end: 20130324
  5. ROWATINEX [Suspect]
     Indication: INTENTIONAL OVERDOSE
     Route: 065
     Dates: start: 20130324, end: 20130324

REACTIONS (3)
  - Intentional overdose [Unknown]
  - Abdominal pain [Recovering/Resolving]
  - Drug abuse [Unknown]
